FAERS Safety Report 12525987 (Version 3)
Quarter: 2016Q4

REPORT INFORMATION
  Report Type: Spontaneous
  Country: GB (occurrence: GB)
  Receive Date: 20160705
  Receipt Date: 20161019
  Transmission Date: 20170207
  Serious: Yes (Hospitalization, Other)
  Sender: FDA-Public Use
  Company Number: GB-009507513-1606GBR014253

PATIENT
  Age: 67 Year
  Sex: Male

DRUGS (7)
  1. METRONIDAZOLE. [Suspect]
     Active Substance: METRONIDAZOLE
     Dosage: UNK
     Route: 048
  2. CLEXANE (ENOXAPARIN SODIUM) [Suspect]
     Active Substance: ENOXAPARIN SODIUM
     Route: 065
  3. RAMIPRIL. [Suspect]
     Active Substance: RAMIPRIL
     Route: 065
  4. OMEPRAZOLE. [Suspect]
     Active Substance: OMEPRAZOLE
     Route: 048
  5. INSULIN [Suspect]
     Active Substance: INSULIN NOS
     Route: 065
  6. EZETIMIBE. [Suspect]
     Active Substance: EZETIMIBE
     Route: 048
  7. ATORVASTATIN [Suspect]
     Active Substance: ATORVASTATIN
     Dosage: UNK
     Route: 065

REACTIONS (1)
  - Acute kidney injury [Unknown]

NARRATIVE: CASE EVENT DATE: 20160622
